FAERS Safety Report 9280614 (Version 1)
Quarter: 2013Q2

REPORT INFORMATION
  Report Type: Spontaneous
  Country: GB (occurrence: None)
  Receive Date: 20130503
  Receipt Date: 20130503
  Transmission Date: 20140414
  Serious: Yes (Other)
  Sender: FDA-Public Use
  Company Number: NGX_01741_2013

PATIENT
  Age: 63 Year
  Sex: Male
  Weight: 84 kg

DRUGS (1)
  1. QUTENZA [Suspect]
     Indication: PAIN IN EXTREMITY
     Dosage: [PATCHES]
     Route: 061
     Dates: start: 20130409, end: 20130409

REACTIONS (1)
  - Application site pain [None]
